FAERS Safety Report 5519496-7 (Version None)
Quarter: 2007Q4

REPORT INFORMATION
  Report Type: 
  Country: None (occurrence: None)
  Receive Date: 20071116
  Receipt Date: 20071106
  Transmission Date: 20080405
  Serious: Yes (Hospitalization)
  Sender: FDA-Public Use
  Company Number: US-ELI_LILLY_AND_COMPANY-US200711001701

PATIENT
  Age: 56 Year
  Sex: Male

DRUGS (2)
  1. BYETTA [Suspect]
     Indication: RENAL DISORDER
  2. METFORMIN HCL [Concomitant]
     Indication: RENAL DISORDER

REACTIONS (6)
  - BLOOD CREATININE ABNORMAL [None]
  - BLOOD GLUCOSE ABNORMAL [None]
  - HEPATIC ENZYME ABNORMAL [None]
  - HEPATIC STEATOSIS [None]
  - URINARY TRACT INFECTION [None]
  - UROSEPSIS [None]
